FAERS Safety Report 19838470 (Version 1)
Quarter: 2021Q3

REPORT INFORMATION
  Report Type: Report from Study
  Country: GB (occurrence: GB)
  Receive Date: 20210916
  Receipt Date: 20210916
  Transmission Date: 20211014
  Serious: Yes (Other)
  Sender: FDA-Public Use
  Company Number: GB-CELLTRION INC.-2020GB035141

PATIENT

DRUGS (129)
  1. TRASTUZUMAB. [Suspect]
     Active Substance: TRASTUZUMAB
     Indication: BREAST CANCER
     Dosage: 600 MG EVERY 3 WEEKS (PHARMACEUTICAL DOSE FORM: 230); 600 MG, TIW
     Route: 042
     Dates: start: 20150420
  2. DOCETAXEL. [Suspect]
     Active Substance: DOCETAXEL
     Indication: BREAST CANCER
     Dosage: 150 MG EVERY 3 WEEKS; 150 MG, TIW
     Route: 042
     Dates: start: 20150421, end: 20150421
  3. E45 [Concomitant]
     Active Substance: LANOLIN\LIGHT MINERAL OIL\PARAFFIN
     Indication: PRODUCT USED FOR UNKNOWN INDICATION
     Dosage: UNK, PRN (PHARMACEUTICAL DOSE FORM: 17); UNK (AS NECESSARY)
     Route: 061
     Dates: start: 20150515
  4. IBUPROFEN. [Concomitant]
     Active Substance: IBUPROFEN
     Dosage: 1, AS NECESSARY (PHARMACEUTICAL DOSE FORM: 245)
     Route: 048
     Dates: start: 20161229
  5. NAPROXEN. [Concomitant]
     Active Substance: NAPROXEN
     Dosage: 500 MILLIGRAM
     Route: 048
     Dates: start: 2015, end: 20160314
  6. OMEPRAZOLE. [Concomitant]
     Active Substance: OMEPRAZOLE
     Dosage: 20 MG, QD (CUMULATIVE DOSE: 440 MG)
     Route: 048
     Dates: start: 20150713
  7. PARACETAMOL [Concomitant]
     Active Substance: ACETAMINOPHEN
     Dosage: 1 G (PHARMACEUTICAL DOSAGE FORM: 245)
     Route: 048
     Dates: start: 20180218, end: 20180220
  8. RANITIDINE. [Concomitant]
     Active Substance: RANITIDINE
     Dosage: 150 MG (DOSAGE FORM: 245)
     Route: 048
     Dates: start: 20150421
  9. RANITIDINE. [Concomitant]
     Active Substance: RANITIDINE
     Dosage: 150 MILLIGRAM, QD
     Route: 048
     Dates: start: 20150421
  10. TAMIFLU [Concomitant]
     Active Substance: OSELTAMIVIR PHOSPHATE
     Dosage: 150 MILLIGRAM, QD (CUMULATIVE DOSE 152856.25 MG)
     Route: 048
     Dates: start: 20180226
  11. TAZOCIN [Concomitant]
     Active Substance: PIPERACILLIN SODIUM\TAZOBACTAM SODIUM
     Dosage: 4.5 G, 0.33/DAY
     Route: 042
     Dates: start: 20180220
  12. ENOXAPARIN SODIUM. [Concomitant]
     Active Substance: ENOXAPARIN SODIUM
     Indication: PRODUCT USED FOR UNKNOWN INDICATION
     Dosage: 40 MILLIGRAM, QD
     Route: 058
     Dates: start: 20180219, end: 20180220
  13. TRASTUZUMAB. [Suspect]
     Active Substance: TRASTUZUMAB
     Dosage: UNK
  14. TRASTUZUMAB. [Suspect]
     Active Substance: TRASTUZUMAB
     Dosage: 500 MILLIGRAM, Q3WK(DOSE FORM: 230; CUMULATIVE DOSE 22810.516 MG)
     Route: 042
     Dates: start: 20171227
  15. DOCETAXEL. [Suspect]
     Active Substance: DOCETAXEL
     Dosage: 150 MILLIGRAM, Q2WK (CUMULATIVE DOSE: 246.42857 MG)
     Route: 042
     Dates: start: 20150421, end: 20150421
  16. PERTUZUMAB. [Suspect]
     Active Substance: PERTUZUMAB
     Dosage: 420 MILLIGRAM, Q3WK
     Route: 042
     Dates: start: 20150420
  17. ACYCLOVIR. [Concomitant]
     Active Substance: ACYCLOVIR
     Indication: PRODUCT USED FOR UNKNOWN INDICATION
     Dosage: 800 MG, QD (PHARMACEUTICAL DOSE FORM: 245)(CUMULATIVE DOSE: 511233.34 MG)
     Route: 048
     Dates: start: 20170211, end: 20170218
  18. CALCEOS [Concomitant]
     Active Substance: CALCIUM CARBONATE\CHOLECALCIFEROL
     Dosage: UNK, QD
     Route: 048
     Dates: start: 20150713, end: 20150824
  19. CODEINE [Concomitant]
     Active Substance: CODEINE
     Dosage: UNK
  20. DOMPERIDONE [Concomitant]
     Active Substance: DOMPERIDONE
     Dosage: 10 MILLIGRAM
     Route: 048
     Dates: start: 20150420, end: 20150427
  21. DOMPERIDONE [Concomitant]
     Active Substance: DOMPERIDONE
     Dosage: 30MG EVERY DAY (PHARMACEUTICAL DOSE FORM: 245)(CUMULATIVE DOSE: 720MG)
     Route: 048
     Dates: start: 20150420, end: 20150427
  22. ENOXAPARIN [Concomitant]
     Active Substance: ENOXAPARIN
     Dosage: 40 MG (CUMULATIVE DOSE 40481.668 MG)
     Route: 058
     Dates: start: 20180219, end: 20180220
  23. LAXIDO [Concomitant]
     Active Substance: POLYETHYLENE GLYCOL 3350\POTASSIUM CHLORIDE\SODIUM BICARBONATE\SODIUM CHLORIDE
     Dosage: UNK
     Route: 065
     Dates: start: 20180219, end: 20180220
  24. MEGACE [Concomitant]
     Active Substance: MEGESTROL ACETATE
     Indication: MENOPAUSAL SYMPTOMS
     Dosage: 80 MG, BID
     Route: 048
     Dates: start: 20150601
  25. OMEPRAZOLE. [Concomitant]
     Active Substance: OMEPRAZOLE
     Indication: GASTROOESOPHAGEAL REFLUX DISEASE
     Dosage: 20 MG, QD
     Route: 048
     Dates: start: 20150622
  26. PARACETAMOL [Concomitant]
     Active Substance: ACETAMINOPHEN
     Dosage: 4 G, QD (PHARMACEUTICAL DOSE FORM: 245)(CUMULATIVE DOSE: 68G)
     Route: 048
     Dates: start: 20150427, end: 20150505
  27. TAMIFLU [Concomitant]
     Active Substance: OSELTAMIVIR PHOSPHATE
     Dosage: 75 MG (DOSAGE FORM: 245)
     Route: 048
     Dates: start: 20180219, end: 20180226
  28. TAMIFLU [Concomitant]
     Active Substance: OSELTAMIVIR PHOSPHATE
     Dosage: 75 MILLIGRAM, QD (CUMULATIVE DOSE 75903.125 MG)
     Route: 048
     Dates: start: 20180219, end: 20180226
  29. TAZOCIN [Concomitant]
     Active Substance: PIPERACILLIN SODIUM\TAZOBACTAM SODIUM
     Indication: NEUTROPENIC SEPSIS
     Dosage: 4.5 G EVERY 3 DAYS  (CUMULATIVE DOSE: 22.5G)
     Route: 042
     Dates: start: 20150429
  30. SENNA [Concomitant]
     Active Substance: SENNA LEAF\SENNOSIDES\SENNOSIDES A AND B
     Dosage: UNK, QD
     Route: 048
     Dates: start: 20180209, end: 20180220
  31. TRASTUZUMAB. [Suspect]
     Active Substance: TRASTUZUMAB
     Dosage: 600 MG, EVERY 3 WEEKS (DOSAGE FORM: 293)
     Route: 042
  32. ADCAL?D3 [Concomitant]
     Active Substance: CALCIUM CARBONATE\CHOLECALCIFEROL
     Dosage: 2 UNK, QD (DOSAGE TEXT: 1 TABLET)(PHARMACEUTICAL DOSE FORM: 245)
     Route: 048
     Dates: start: 20150623, end: 20150625
  33. CODEINE [Concomitant]
     Active Substance: CODEINE
     Dosage: 1, AS NECESSARY (PHARMACEUTICAL DOSE FORM: 245)
     Route: 065
     Dates: start: 20151221, end: 20160425
  34. DENOSUMAB [Concomitant]
     Active Substance: DENOSUMAB
     Dosage: 120 MG 0.5 IN A DAY
     Route: 048
  35. ENOXAPARIN [Concomitant]
     Active Substance: ENOXAPARIN
     Dosage: 40 MG, QD
     Route: 058
     Dates: start: 20180220
  36. NAPROXEN. [Concomitant]
     Active Substance: NAPROXEN
     Dosage: 500 MILLIGRAM
     Route: 048
     Dates: start: 20180218, end: 20180220
  37. OMEPRAZOLE. [Concomitant]
     Active Substance: OMEPRAZOLE
     Dosage: 20 MILLIGRAM, QD(CUMULATIVE DOSE 440MG)
     Route: 048
     Dates: start: 20150622, end: 20150713
  38. TAMIFLU [Concomitant]
     Active Substance: OSELTAMIVIR PHOSPHATE
     Indication: PRODUCT USED FOR UNKNOWN INDICATION
     Dosage: 150 MG, QD (DOSAGE FORM: 245) )(CUMULATIVE DOSE: 151806.25MG)
     Route: 048
     Dates: start: 20180219, end: 20180226
  39. VASELINE PURE [Concomitant]
     Active Substance: PETROLATUM
     Indication: PRODUCT USED FOR UNKNOWN INDICATION
     Dosage: UNK
     Route: 061
     Dates: start: 20160816
  40. VASELINE PURE [Concomitant]
     Active Substance: PETROLATUM
     Dosage: UNK
     Route: 061
     Dates: start: 20180219
  41. TRASTUZUMAB. [Suspect]
     Active Substance: TRASTUZUMAB
     Indication: BREAST CANCER
     Dosage: 840 MG, TIW; EVERY 3 WEEKS
     Route: 042
     Dates: start: 20150420
  42. DOCETAXEL. [Suspect]
     Active Substance: DOCETAXEL
     Dosage: 120 MG EVERY 3 WEEKS
     Route: 042
     Dates: start: 20150512, end: 20150804
  43. BRUFEN [Concomitant]
     Active Substance: IBUPROFEN
     Dosage: 400 MILLIGRAM, QD(PHARMACEUTICAL DOSE FORM: 245)(CUMULATIVE DOSE: 9600MG)
     Route: 048
     Dates: start: 20150420, end: 20150426
  44. BRUFEN [Concomitant]
     Active Substance: IBUPROFEN
     Dosage: 200 MG, 0.5 DAY
     Route: 048
     Dates: start: 20150420, end: 20150426
  45. CODEINE PHOSPHATE [Concomitant]
     Active Substance: CODEINE PHOSPHATE
     Indication: PRODUCT USED FOR UNKNOWN INDICATION
     Dosage: 30 MG, AS NECESSARY (PHARMACEUTICAL DOSE FORM: 245)
     Route: 048
     Dates: start: 20160816
  46. E45 [Concomitant]
     Active Substance: LANOLIN\LIGHT MINERAL OIL\PARAFFIN
     Dosage: 1, AS NECESSARY (PHARMACEUTICAL DOSE FORM: 17)
     Route: 061
     Dates: start: 20150515
  47. IBUPROFEN. [Concomitant]
     Active Substance: IBUPROFEN
     Dosage: 400 MILLIGRAM
     Route: 048
     Dates: start: 20161229
  48. MEGACE [Concomitant]
     Active Substance: MEGESTROL ACETATE
     Dosage: 80 MILLIGRAM, BID
     Route: 048
     Dates: start: 20150601
  49. TAZOCIN [Concomitant]
     Active Substance: PIPERACILLIN SODIUM\TAZOBACTAM SODIUM
     Dosage: 4.5 G, 0.33/DAY
     Route: 042
     Dates: start: 20150429
  50. ZOPICLONE [Concomitant]
     Active Substance: ZOPICLONE
     Dosage: 3.75 MG AS NECESSARY (PHARMACEUTICAL DOSAGE FORM: 245)
     Route: 048
     Dates: start: 20151019
  51. ACICLOVIR [Concomitant]
     Active Substance: ACYCLOVIR
     Dosage: 800 MILLIGRAM, QD (CUMULATIVE DOSE: 6400 MG)
     Route: 048
     Dates: start: 20170211, end: 20170218
  52. METHYL SALICYLATE [Concomitant]
     Active Substance: METHYL SALICYLATE
     Indication: PRODUCT USED FOR UNKNOWN INDICATION
     Dosage: UNK (AS NECESSARY) (PHARMACEUTICAL DOSAGE FORM: 245)
     Route: 048
     Dates: start: 20161229
  53. TRASTUZUMAB. [Suspect]
     Active Substance: TRASTUZUMAB
     Dosage: 840 MILLIGRAM, Q3WK (DOSAGE FORM: 293; CUMULATIVE DOSE: 960 MG)
     Route: 042
     Dates: start: 20150420
  54. DOCETAXEL. [Suspect]
     Active Substance: DOCETAXEL
     Dosage: 120 MG EVERY 3 WEEKS; 120 MG, TIW (CUMULATIVE DOSE: 11.428572 MG)
     Route: 042
     Dates: start: 20150512
  55. PERTUZUMAB. [Suspect]
     Active Substance: PERTUZUMAB
     Indication: BREAST CANCER
     Dosage: 840 MG, 3/WEEKS
     Route: 042
     Dates: start: 20150420
  56. PERTUZUMAB. [Suspect]
     Active Substance: PERTUZUMAB
     Indication: BREAST CANCER
     Dosage: 840 MG EVERY 3 WEEKS  (CUMULATIVE DOSE: 960MG)
     Route: 042
     Dates: start: 20150420
  57. XGEVA [Suspect]
     Active Substance: DENOSUMAB
     Dosage: 120 MILLIGRAM, BID (CUMULATIVE DOSE: 234490.0 MG)
     Route: 048
     Dates: start: 20180115
  58. ACYCLOVIR. [Concomitant]
     Active Substance: ACYCLOVIR
     Dosage: 200 MG (PHARMACEUTICAL DOSAGE FORM: 245)
     Route: 048
     Dates: start: 20170211, end: 20170218
  59. CO?AMOXICLAV [Concomitant]
     Active Substance: AMOXICILLIN\CLAVULANATE POTASSIUM
     Dosage: UNK UNK, QD
     Route: 048
     Dates: start: 20180220, end: 20180225
  60. DENOSUMAB [Concomitant]
     Active Substance: DENOSUMAB
     Indication: PRODUCT USED FOR UNKNOWN INDICATION
     Dosage: 240 MG, QD
     Route: 048
     Dates: start: 20180115
  61. E45 [Concomitant]
     Active Substance: LANOLIN\LIGHT MINERAL OIL\PARAFFIN
     Dosage: UNK UNK, AS NECESSARY
     Route: 061
     Dates: start: 20150515
  62. LAXIDO [Concomitant]
     Active Substance: POLYETHYLENE GLYCOL 3350\POTASSIUM CHLORIDE\SODIUM BICARBONATE\SODIUM CHLORIDE
     Dosage: 0.5
     Route: 048
     Dates: start: 20180219, end: 20180220
  63. MEGACE [Concomitant]
     Active Substance: MEGESTROL ACETATE
     Dosage: 80 MG, EVERY 2 DAYS (PHARMACEUTICAL DOSE FORM: 245)
     Route: 048
     Dates: start: 20150601
  64. OMEPRAZOLE. [Concomitant]
     Active Substance: OMEPRAZOLE
     Dosage: 220 MG, QD (PHARMACEUTICAL DOSAGE FORM: 245) (CUMULATIVE DOSE: 8580MG)
     Route: 048
     Dates: start: 20150622, end: 20150713
  65. RANITIDINE. [Concomitant]
     Active Substance: RANITIDINE
     Indication: GASTROOESOPHAGEAL REFLUX DISEASE
     Dosage: 300 MG, QD (PHARMACEUTICAL DOSE FORM: 245)(CUMULATIVE DOSE: 6900MG)
     Route: 048
     Dates: start: 20150421
  66. TAZOCIN [Concomitant]
     Active Substance: PIPERACILLIN SODIUM\TAZOBACTAM SODIUM
     Dosage: 13.5 G, QD (DOSAGE FORM: 230))(CUMULATIVE DOSE 13649.0625 G)
     Route: 042
     Dates: start: 20180218, end: 20180220
  67. TAZOCIN [Concomitant]
     Active Substance: PIPERACILLIN SODIUM\TAZOBACTAM SODIUM
     Dosage: 13.5 GRAM, QD (CUMULATIVE DOSE 202.5 G)
     Route: 042
     Dates: start: 20150429
  68. TAZOCIN [Concomitant]
     Active Substance: PIPERACILLIN SODIUM\TAZOBACTAM SODIUM
     Dosage: 4.5 GRAM, QD (PHARMACEUTICAL DOSE FORM: 230)(CUMULATIVE DOSE 13649.0625 G)
     Route: 042
     Dates: start: 20180218, end: 20180220
  69. CLAVULANATE POTASSIUM [Concomitant]
     Active Substance: CLAVULANATE POTASSIUM
     Dosage: 1875 MILLIGRAM, QD (CUMULATIVE DOSE: 1908828.1 MG)
     Route: 048
     Dates: start: 20180225
  70. HYDROCORTISONE. [Concomitant]
     Active Substance: HYDROCORTISONE
     Indication: ECZEMA
     Dosage: UNK UNK, AS NECESSARY (AS NEEDED)
     Route: 061
  71. TRASTUZUMAB. [Suspect]
     Active Substance: TRASTUZUMAB
     Dosage: 500 MILLIGRAM, Q3WK(DOSE FORM: 230; CUMULATIVE DOSE 22810.516 MG)
     Dates: start: 20171227
  72. DOCETAXEL. [Suspect]
     Active Substance: DOCETAXEL
     Indication: BREAST CANCER
     Dosage: 150 MG EVERY 3 WEEKS; 150 MG, TIW
     Route: 042
     Dates: start: 20150421, end: 20150421
  73. XGEVA [Suspect]
     Active Substance: DENOSUMAB
     Indication: PRODUCT USED FOR UNKNOWN INDICATION
     Dosage: 120 MILLIGRAM, QMO (CUMULATIVE DOSE: 160 MG)
     Route: 058
     Dates: start: 20150623
  74. XGEVA [Suspect]
     Active Substance: DENOSUMAB
     Dosage: 240 MILLIGRAM, QD
     Route: 048
  75. AMOXICILLIN. [Concomitant]
     Active Substance: AMOXICILLIN
     Indication: PRODUCT USED FOR UNKNOWN INDICATION
     Route: 065
  76. CALCEOS [Concomitant]
     Active Substance: CALCIUM CARBONATE\CHOLECALCIFEROL
     Dosage: 1 QD, (DOSAGE TEXT: 1 TABLET)(PHARMACEUTICAL DOSE FORM: 245)
     Route: 048
     Dates: start: 20150713
  77. CO?AMOXICLAV [Concomitant]
     Active Substance: AMOXICILLIN\CLAVULANATE POTASSIUM
     Indication: PRODUCT USED FOR UNKNOWN INDICATION
     Dosage: 3 TIMES A DAY
     Route: 048
     Dates: start: 20180220, end: 20180225
  78. CO?AMOXICLAV [Concomitant]
     Active Substance: AMOXICILLIN\CLAVULANATE POTASSIUM
     Dosage: UNK
     Dates: start: 20180220, end: 20180225
  79. CO?AMOXICLAV [Concomitant]
     Active Substance: AMOXICILLIN\CLAVULANATE POTASSIUM
     Dosage: 625 MG, 0.33 DAY
     Route: 048
     Dates: start: 20180225
  80. DENOSUMAB [Concomitant]
     Active Substance: DENOSUMAB
     Dosage: 240MG EVERY DAY (PHARMACEUTICAL DOSE FORM: 245)(CUMULATIVE DOSE: 234490.0MG)
     Route: 048
     Dates: start: 20180115
  81. DOMPERIDONE [Concomitant]
     Active Substance: DOMPERIDONE
     Indication: NAUSEA
     Dosage: 30 MG, A DAY; 10 MG, TID
     Route: 048
     Dates: start: 20150420, end: 20150427
  82. IBUPROFEN. [Concomitant]
     Active Substance: IBUPROFEN
     Dosage: 400 MG, AS NECESSARY (DOSAGE FORM: 245)
     Route: 048
     Dates: start: 20161229
  83. LOPERAMIDE [Concomitant]
     Active Substance: LOPERAMIDE
     Indication: DIARRHOEA
     Dosage: 2 MG AS NEEDED (DOSAGE FORM: 245)
     Route: 048
     Dates: start: 20150516, end: 20150516
  84. NAPROXEN. [Concomitant]
     Active Substance: NAPROXEN
     Dosage: 1000 MG, QD (PHARMACEUTICAL DOSE FORM: 245)(CUMULATIVE DOSE: 1011041.7MG)
     Route: 048
     Dates: start: 20180218, end: 20180220
  85. ACICLOVIR [Concomitant]
     Active Substance: ACYCLOVIR
     Dosage: 200 MG, 0.25/DAY
     Route: 048
     Dates: start: 20170211, end: 20170218
  86. AMOXIL [Concomitant]
     Active Substance: AMOXICILLIN
     Indication: CHEST PAIN
     Dosage: UNK
     Dates: start: 20171227, end: 20180102
  87. AMOXICILLIN;CLAVULANATE POTASSIUM [Concomitant]
     Active Substance: AMOXICILLIN\CLAVULANATE POTASSIUM
     Dosage: 625 MG, 0.33/DAY
     Route: 048
     Dates: start: 20180225
  88. GAVISCON [SODIUM ALGINATE;SODIUM BICARBONATE] [Concomitant]
     Active Substance: SODIUM ALGINATE\SODIUM BICARBONATE
     Indication: GASTROOESOPHAGEAL REFLUX DISEASE
     Dosage: AS NEEDED
     Route: 048
     Dates: start: 201505
  89. NORMAL SALINE [Concomitant]
     Active Substance: SODIUM CHLORIDE
     Indication: ABDOMINAL PAIN
     Dosage: 0.9%, AS NEEDED.
     Route: 042
     Dates: start: 20160125, end: 20160125
  90. SENNA [Concomitant]
     Active Substance: SENNA LEAF\SENNOSIDES\SENNOSIDES A AND B
     Dosage: UNK, SOLUTION
     Route: 048
     Dates: start: 20180219, end: 20180220
  91. VASELINE [PARAFFIN] [Concomitant]
     Active Substance: PARAFFIN
     Dosage: UNK, AS NECESSARY
     Route: 061
     Dates: start: 20160816
  92. TRASTUZUMAB. [Suspect]
     Active Substance: TRASTUZUMAB
     Dosage: 600 MILLIGRAM, Q3WK (PHARMACEUTICAL DOSE FORM: 230)(CUMULATIVE DOSE: 685.7143 MG)
     Route: 042
  93. DOCETAXEL. [Suspect]
     Active Substance: DOCETAXEL
     Dosage: 120 MG EVERY 3 WEEKS; 120 MG, TIW (CUMULATIVE DOSE: 11.428572 MG)
     Route: 042
     Dates: start: 20150512
  94. PERTUZUMAB. [Suspect]
     Active Substance: PERTUZUMAB
     Dosage: 840 MG, EVERY 3 WEEKS
     Route: 042
  95. ADCAL?D3 [Concomitant]
     Active Substance: CALCIUM CARBONATE\CHOLECALCIFEROL
     Indication: PRODUCT USED FOR UNKNOWN INDICATION
     Dosage: 1 TABLET
     Route: 048
     Dates: start: 20150623, end: 20150625
  96. ADCAL?D3 [Concomitant]
     Active Substance: CALCIUM CARBONATE\CHOLECALCIFEROL
     Dosage: UNK UNK, QD (1 TABLET) (PHARMACEUTICAL DOSAGE FORM: 245)
     Route: 048
     Dates: start: 20150623, end: 20150625
  97. ADCAL?D3 [Concomitant]
     Active Substance: CALCIUM CARBONATE\CHOLECALCIFEROL
     Dosage: 0.5 DAY
     Route: 048
     Dates: start: 20150623, end: 20150625
  98. BRUFEN [Concomitant]
     Active Substance: IBUPROFEN
     Indication: ARTHRALGIA
     Dosage: 400 MG A DAY (DOSAGE FORM: 245)
     Route: 048
     Dates: start: 20150420, end: 20150426
  99. CALCEOS [Concomitant]
     Active Substance: CALCIUM CARBONATE\CHOLECALCIFEROL
     Indication: PRODUCT USED FOR UNKNOWN INDICATION
     Dosage: UNK, QD; 1 TABLET
     Route: 048
     Dates: start: 20150713, end: 20150824
  100. CO?AMOXICLAV [Concomitant]
     Active Substance: AMOXICILLIN\CLAVULANATE POTASSIUM
     Dosage: 3, QD, (PHARMACEUTICAL DOSE FORM: 245)
     Route: 048
     Dates: start: 20180220, end: 20180225
  101. CODEINE [Concomitant]
     Active Substance: CODEINE
     Indication: ARTHRALGIA
     Dosage: 30 MG, AS NEEDED; UNK (AS NECESSARY)
     Route: 048
     Dates: start: 20151221, end: 20160425
  102. DENOSUMAB [Concomitant]
     Active Substance: DENOSUMAB
     Dosage: 120 MG, MONTHLY
     Route: 058
     Dates: start: 20150623
  103. LOPERAMIDE [Concomitant]
     Active Substance: LOPERAMIDE
     Dosage: 2 MILLIGRAM, AS NECESSARY
     Route: 048
     Dates: start: 20150516, end: 20150516
  104. NAPROXEN. [Concomitant]
     Active Substance: NAPROXEN
     Indication: PRODUCT USED FOR UNKNOWN INDICATION
     Dosage: UNK (PHARMACEUTICAL DOSAGE FORM: 245)
     Route: 048
     Dates: start: 2015, end: 20160314
  105. NAPROXEN. [Concomitant]
     Active Substance: NAPROXEN
     Dosage: 500 MG, BID (PHARMACEUTICAL DOSAGE FORM: 245)
     Route: 048
     Dates: start: 20180218, end: 20180220
  106. PARACETAMOL [Concomitant]
     Active Substance: ACETAMINOPHEN
     Indication: ARTHRALGIA
     Dosage: 1 G, 0.25/DAY
     Route: 048
     Dates: start: 20150427
  107. PARACETAMOL [Concomitant]
     Active Substance: ACETAMINOPHEN
     Dosage: 4 G PER DAY; 1 G, QID (PHARMACEUTICAL DOSAGE FORM: 245)
     Route: 048
     Dates: start: 20150427, end: 20150505
  108. PARACETAMOL [Concomitant]
     Active Substance: ACETAMINOPHEN
     Dosage: 1 GRAM, QID
     Route: 048
     Dates: start: 20150427
  109. PARACETAMOL [Concomitant]
     Active Substance: ACETAMINOPHEN
     Dosage: 1 GRAM, QID (CUMULATIVE DOSE: 4044.1667 G)
     Route: 048
     Dates: start: 20180218, end: 20180220
  110. RANITIDINE. [Concomitant]
     Active Substance: RANITIDINE
     Dosage: 150 MG, 0.5 DAY
     Route: 048
     Dates: start: 20150421
  111. VASELINE PURE [Concomitant]
     Active Substance: PETROLATUM
     Dosage: UNK
  112. ZOPICLONE [Concomitant]
     Active Substance: ZOPICLONE
     Indication: SLEEP DISORDER
     Dosage: 3.75 MG AT NIGHT; AS NECESSARY (DOSAGE FORM: 245)
     Route: 048
     Dates: start: 20151019
  113. TRASTUZUMAB. [Suspect]
     Active Substance: TRASTUZUMAB
     Dosage: 500 MG  3/WEEKS
     Route: 041
     Dates: start: 20171227
  114. TRASTUZUMAB. [Suspect]
     Active Substance: TRASTUZUMAB
     Dosage: PHARMACEUTICAL DOSAGE FORM: 230
  115. TRASTUZUMAB. [Suspect]
     Active Substance: TRASTUZUMAB
     Dosage: 600 MILLIGRAM, Q3WK (PHARMACEUTICAL DOSE FORM: 230)(CUMULATIVE DOSE: 685.7143 MG)
     Route: 042
  116. DOCETAXEL. [Suspect]
     Active Substance: DOCETAXEL
     Dosage: 150 MILLIGRAM, EVERY 3 WEEKS (CUMULATIVE DOSE: 164.28572 MG)
     Route: 042
     Dates: start: 20150421, end: 20150421
  117. DOCETAXEL. [Suspect]
     Active Substance: DOCETAXEL
     Dosage: 150 MILLIGRAM, EVERY 3 WEEKS (CUMULATIVE DOSE: 164.28572 MG)
     Route: 042
     Dates: start: 20150421, end: 20150421
  118. CODEINE PHOSPHATE [Concomitant]
     Active Substance: CODEINE PHOSPHATE
     Dosage: 30 MILLIGRAM
     Route: 048
     Dates: start: 20160816
  119. DENOSUMAB [Concomitant]
     Active Substance: DENOSUMAB
     Dosage: 120 MG, QD
     Route: 048
     Dates: start: 20180115
  120. ENOXAPARIN [Concomitant]
     Active Substance: ENOXAPARIN
     Dosage: 40 MG
     Route: 058
     Dates: start: 20180219, end: 20180220
  121. LAXIDO [Concomitant]
     Active Substance: POLYETHYLENE GLYCOL 3350\POTASSIUM CHLORIDE\SODIUM BICARBONATE\SODIUM CHLORIDE
     Indication: PRODUCT USED FOR UNKNOWN INDICATION
     Dosage: 0.5/DAY (SOLUTION)
     Route: 048
     Dates: start: 20180219, end: 20180220
  122. LOPERAMIDE [Concomitant]
     Active Substance: LOPERAMIDE
     Dosage: 2 MG (PHARMACEUTICAL DOSE FORM: 245)
     Route: 048
     Dates: start: 20150516, end: 20150516
  123. PARACETAMOL [Concomitant]
     Active Substance: ACETAMINOPHEN
     Dosage: 1 G, 0.25/DAY
     Route: 048
     Dates: start: 20180220
  124. TAMIFLU [Concomitant]
     Active Substance: OSELTAMIVIR PHOSPHATE
     Dosage: 75 MG, 0.5/DAY
     Route: 048
     Dates: start: 20180226
  125. TAMIFLU [Concomitant]
     Active Substance: OSELTAMIVIR PHOSPHATE
     Dosage: 75 MG (CUMULATIVE DOSE 75903.125 MG)
     Route: 048
     Dates: start: 20180219, end: 20180226
  126. TAZOCIN [Concomitant]
     Active Substance: PIPERACILLIN SODIUM\TAZOBACTAM SODIUM
     Dosage: 4.5 G, QD (DOSAGE FORM: 230)
     Route: 042
     Dates: start: 20180218, end: 20180220
  127. TAZOCIN [Concomitant]
     Active Substance: PIPERACILLIN SODIUM\TAZOBACTAM SODIUM
     Dosage: 4.5 GRAM, TID (CUMULATIVE DOSE 13649.0625 G)
     Route: 042
     Dates: start: 20180218, end: 20180220
  128. TAZOCIN [Concomitant]
     Active Substance: PIPERACILLIN SODIUM\TAZOBACTAM SODIUM
     Dosage: 4.5 GRAM, TID (CUMULATIVE DOSE: 202.5 G)
     Route: 042
     Dates: start: 20150429
  129. AQUEOUS [Concomitant]
     Dosage: UNK, (PHARMACEUTICAL DOSAGE FORM: 17)
     Dates: start: 20181112

REACTIONS (9)
  - Diarrhoea [Recovered/Resolved]
  - Dry eye [Recovered/Resolved]
  - Arthralgia [Recovered/Resolved with Sequelae]
  - Pruritus [Recovered/Resolved]
  - Off label use [Unknown]
  - Eczema [Recovered/Resolved]
  - Dry skin [Not Recovered/Not Resolved]
  - Eczema [Recovered/Resolved]
  - Rash [Recovered/Resolved]

NARRATIVE: CASE EVENT DATE: 20150514
